FAERS Safety Report 8087816-8 (Version None)
Quarter: 2012Q1

REPORT INFORMATION
  Report Type: 
  Country: None (occurrence: None)
  Receive Date: 20120128
  Receipt Date: 20110606
  Transmission Date: 20120608
  Serious: No
  Sender: FDA-Public Use
  Company Number: US-ABBOTT-11P-163-0730567-00

PATIENT
  Age: 9 Year
  Sex: Male

DRUGS (4)
  1. ZANAFLEX [Concomitant]
     Indication: JUVENILE ARTHRITIS
     Dosage: BEDTIME 1MG
  2. CELEBREX [Concomitant]
     Indication: JUVENILE ARTHRITIS
     Dosage: 200 MG DAILY
  3. HUMIRA [Suspect]
     Indication: JUVENILE ARTHRITIS
     Dates: start: 20110414
  4. PREDNISONE TAB [Concomitant]
     Indication: JUVENILE ARTHRITIS
     Dosage: 2.5 MG DAILY

REACTIONS (3)
  - ANXIETY [None]
  - SCRATCH [None]
  - INJURY ASSOCIATED WITH DEVICE [None]
